FAERS Safety Report 15368416 (Version 2)
Quarter: 2018Q3

REPORT INFORMATION
  Report Type: Report from Study
  Country: None (occurrence: CA)
  Receive Date: 20180910
  Receipt Date: 20180926
  Transmission Date: 20181010
  Serious: Yes (Death)
  Sender: FDA-Public Use
  Company Number: CA-ABBVIE-18K-028-2479957-00

PATIENT
  Age: 49 Year
  Sex: Male

DRUGS (1)
  1. HUMIRA [Suspect]
     Active Substance: ADALIMUMAB
     Indication: CROHN^S DISEASE
     Route: 058
     Dates: start: 20101028

REACTIONS (3)
  - Hepatic cancer [Fatal]
  - Gastrointestinal carcinoma [Fatal]
  - Gallbladder cancer [Fatal]

NARRATIVE: CASE EVENT DATE: 20171115
